FAERS Safety Report 18111914 (Version 1)
Quarter: 2020Q3

REPORT INFORMATION
  Report Type: Spontaneous
  Country: US (occurrence: US)
  Receive Date: 20200804
  Receipt Date: 20200804
  Transmission Date: 20201103
  Serious: No
  Sender: FDA-Public Use
  Company Number: US-ASTRAZENECA-2020SE96435

PATIENT
  Age: 24945 Day
  Sex: Male
  Weight: 87.1 kg

DRUGS (5)
  1. ISOSORBIDE. [Concomitant]
     Active Substance: ISOSORBIDE
  2. BRILINTA [Suspect]
     Active Substance: TICAGRELOR
     Indication: STENT PLACEMENT
     Route: 048
     Dates: start: 20200629
  3. BABY ASPIRIN [Concomitant]
     Active Substance: ASPIRIN
  4. AMBIEN [Concomitant]
     Active Substance: ZOLPIDEM TARTRATE
  5. PREVACID [Concomitant]
     Active Substance: LANSOPRAZOLE

REACTIONS (2)
  - Dyspepsia [Recovered/Resolved]
  - Dyspnoea [Not Recovered/Not Resolved]

NARRATIVE: CASE EVENT DATE: 20200629
